FAERS Safety Report 9775822 (Version 2)
Quarter: 2014Q1

REPORT INFORMATION
  Report Type: Spontaneous
  Country: US (occurrence: US)
  Receive Date: 20131220
  Receipt Date: 20140106
  Transmission Date: 20141002
  Serious: Yes (Other)
  Sender: FDA-Public Use
  Company Number: US-GLAXOSMITHKLINE-A1053929A

PATIENT
  Age: 49 Year
  Sex: Female

DRUGS (5)
  1. LOVAZA [Suspect]
     Indication: BLOOD CHOLESTEROL INCREASED
     Dosage: 1CAP TWICE PER DAY
     Route: 048
     Dates: start: 2009
  2. COPEGUS [Concomitant]
  3. PEGASYS [Concomitant]
  4. VICTRELIS [Concomitant]
  5. NORVASC [Concomitant]

REACTIONS (1)
  - Hepatitis C [Not Recovered/Not Resolved]
